FAERS Safety Report 7156948-0 (Version None)
Quarter: 2010Q4

REPORT INFORMATION
  Report Type: 
  Country: None (occurrence: None)
  Receive Date: 20101214
  Receipt Date: 20100119
  Transmission Date: 20110411
  Serious: No
  Sender: FDA-Public Use
  Company Number: US-ASTRAZENECA-2010SE02368

PATIENT
  Age: 857 Month
  Sex: Male
  Weight: 88.5 kg

DRUGS (7)
  1. CRESTOR [Suspect]
     Indication: BLOOD CHOLESTEROL INCREASED
     Route: 048
     Dates: start: 20091101, end: 20100101
  2. DIOVAN HCT [Concomitant]
  3. FLOMAX [Concomitant]
  4. AVODART [Concomitant]
  5. FISH OIL [Concomitant]
  6. MULTI-VITAMINS [Concomitant]
  7. FLAXSEED OIL [Concomitant]

REACTIONS (1)
  - PAIN IN EXTREMITY [None]
